FAERS Safety Report 8553906-6 (Version None)
Quarter: 2012Q3

REPORT INFORMATION
  Report Type: 
  Country: None (occurrence: None)
  Receive Date: 20120731
  Receipt Date: 20120720
  Transmission Date: 20120928
  Serious: Yes (Hospitalization)
  Sender: FDA-Public Use
  Company Number: JP-009507513-2012SP029675

PATIENT

DRUGS (18)
  1. PREDNISOLONE [Concomitant]
     Indication: ENANTHEMA
     Dosage: UPDATE(11JUN2012) ENANTHEMA IN ORAL CAVITY
     Route: 048
     Dates: start: 20120518
  2. PREDNISOLONE [Concomitant]
     Dosage: UPDATE(11JUN2012)
     Route: 048
     Dates: start: 20120526
  3. PEG-INTRON [Suspect]
     Indication: HEPATITIS C
     Dosage: 1.5MCG/KG/WEEK
     Route: 058
     Dates: start: 20120315, end: 20120517
  4. DICLOFENAC SODIUM [Concomitant]
     Indication: PYREXIA
     Dosage: VOLTAREN SUPPO, INDICATION: PYREXIA 1,UPDATE(11JUN2012)25MG PER DAY AS NEEDED
     Route: 054
     Dates: start: 20120315
  5. REBETOL [Suspect]
     Dosage: 200 MG, QD
     Route: 048
     Dates: start: 20120413, end: 20120517
  6. ANTIVIRAL (UNSPECIFIED) [Suspect]
     Indication: HEPATITIS C
     Dosage: 2250 MG, QD
     Route: 048
     Dates: start: 20120315, end: 20120509
  7. BETAMETHASONE [Concomitant]
     Indication: PRODUCT USED FOR UNKNOWN INDICATION
     Dosage: UPDATE(11JUN2012)
     Route: 042
     Dates: start: 20120520
  8. CLOBETASOL PROPIONATE [Concomitant]
     Indication: PRODUCT USED FOR UNKNOWN INDICATION
     Dosage: UNK UNK, UNKNOWN
     Route: 061
     Dates: start: 20120319, end: 20120329
  9. TELAVIC [Suspect]
     Route: 048
     Dates: start: 20120510, end: 20120514
  10. REBETOL [Suspect]
     Indication: HEPATITIS C
     Dosage: 600 MG, QD
     Route: 048
     Dates: start: 20120315, end: 20120329
  11. OLOPATADINE HCL [Concomitant]
     Indication: PRODUCT USED FOR UNKNOWN INDICATION
     Dosage: 10 MG, QD
     Route: 048
     Dates: start: 20120319, end: 20120325
  12. PREDNISOLONE [Concomitant]
     Indication: PRODUCT USED FOR UNKNOWN INDICATION
     Dosage: UPDATE(11JUN2012)
     Route: 048
     Dates: start: 20120524
  13. PREDNISOLONE [Concomitant]
     Dosage: UPDATE(11JUN2012)
     Route: 048
     Dates: start: 20120528
  14. BACILLUS SUBTILIS (+) LACTOBACILLUS ACIDOPHILUS (+) STREPTOCOCCUS FAEC [Concomitant]
     Indication: DIARRHOEA
     Dosage: FORMULATION: POR
     Route: 048
     Dates: start: 20120419
  15. TELAVIC [Suspect]
     Indication: HEPATITIS C
     Route: 048
     Dates: start: 20120315, end: 20120509
  16. REBETOL [Suspect]
     Dosage: 400 MG, QD
     Route: 048
     Dates: start: 20120330, end: 20120412
  17. ANTIVIRAL (UNSPECIFIED) [Suspect]
     Dosage: 1500 MG, QD
     Route: 048
     Dates: start: 20120510, end: 20120514
  18. BIOFERMIN (BACILLUS SUBTILIS (+) LACTOBACILLUS ACIDOPHILUS (+) STREPTO [Concomitant]
     Indication: DIARRHOEA
     Route: 048
     Dates: start: 20120419

REACTIONS (4)
  - DRUG ERUPTION [None]
  - ERYTHEMA MULTIFORME [None]
  - PYREXIA [None]
  - ERYTHEMA [None]
